FAERS Safety Report 21123652 (Version 1)
Quarter: 2022Q3

REPORT INFORMATION
  Report Type: Spontaneous
  Country: LT (occurrence: LT)
  Receive Date: 20220725
  Receipt Date: 20220725
  Transmission Date: 20221026
  Serious: Yes (Hospitalization)
  Sender: FDA-Public Use
  Company Number: None

PATIENT
  Age: 81 Year
  Weight: 60 kg

DRUGS (3)
  1. XARELTO [Interacting]
     Active Substance: RIVAROXABAN
     Indication: Thrombosis prophylaxis
     Dosage: 15 MG, QD
     Route: 048
     Dates: start: 20220705, end: 20220711
  2. WARFARIN SODIUM [Suspect]
     Active Substance: WARFARIN SODIUM
     Indication: Thrombosis prophylaxis
     Route: 048
     Dates: start: 20220606, end: 20220711
  3. WARFARIN SODIUM [Suspect]
     Active Substance: WARFARIN SODIUM
     Indication: Atrial fibrillation

REACTIONS (4)
  - Labelled drug-drug interaction medication error [Recovering/Resolving]
  - International normalised ratio increased [Recovering/Resolving]
  - Subcutaneous haematoma [Recovering/Resolving]
  - Product use issue [Recovering/Resolving]

NARRATIVE: CASE EVENT DATE: 20220711
